FAERS Safety Report 18629198 (Version 1)
Quarter: 2020Q4

REPORT INFORMATION
  Report Type: Spontaneous
  Country: US (occurrence: US)
  Receive Date: 20201217
  Receipt Date: 20201217
  Transmission Date: 20210114
  Serious: No
  Sender: FDA-Public Use
  Company Number: US-ESPERIONTHERAPEUTICS-2020USA04863

PATIENT

DRUGS (1)
  1. NEXLIZET [Suspect]
     Active Substance: BEMPEDOIC ACID\EZETIMIBE
     Indication: LOW DENSITY LIPOPROTEIN INCREASED
     Dosage: 180/10 MG, QD
     Route: 048
     Dates: start: 2020

REACTIONS (2)
  - Pain in extremity [Unknown]
  - Peripheral swelling [Unknown]

NARRATIVE: CASE EVENT DATE: 2020
